FAERS Safety Report 8798701 (Version 1)
Quarter: 2012Q4

REPORT INFORMATION
  Report Type: Spontaneous
  Country: US (occurrence: None)
  Receive Date: 20120917
  Receipt Date: 20120917
  Transmission Date: 20130627
  Serious: No
  Sender: FDA-Public Use
  Company Number: None

PATIENT
  Age: 43 Year
  Sex: Male
  Weight: 81.65 kg

DRUGS (1)
  1. SMZ-TMP DS [Suspect]
     Indication: BLADDER INFECTION
     Dosage: 30 twice a day po
     Route: 048
     Dates: start: 20120912, end: 20120915

REACTIONS (3)
  - Oral pain [None]
  - Lip blister [None]
  - Lip swelling [None]
